FAERS Safety Report 25412269 (Version 1)
Quarter: 2025Q2

REPORT INFORMATION
  Report Type: Report from Study
  Country: ES (occurrence: ES)
  Receive Date: 20250609
  Receipt Date: 20250609
  Transmission Date: 20250716
  Serious: Yes (Other)
  Sender: TEVA
  Company Number: ES-TEVA-VS-3338122

PATIENT
  Age: 61 Year
  Sex: Female

DRUGS (6)
  1. TERIPARATIDE [Suspect]
     Active Substance: TERIPARATIDE
     Indication: Osteoporosis
     Route: 065
     Dates: start: 20240125
  2. OMEPRAZOLE [Concomitant]
     Active Substance: OMEPRAZOLE
     Indication: Gastritis prophylaxis
     Route: 065
  3. Lexatin [Concomitant]
     Indication: Anxiety
     Route: 065
  4. DILTIAZEM HYDROCHLORIDE [Concomitant]
     Active Substance: DILTIAZEM HYDROCHLORIDE
     Indication: Cardiovascular event prophylaxis
     Route: 065
  5. RIVOTRIL [Concomitant]
     Active Substance: CLONAZEPAM
     Indication: Anxiety
     Dosage: DOSE: 0.5 PER DAY
     Route: 065
  6. Paracetamol/Ibuprofen [Concomitant]
     Indication: Pain
     Route: 065

REACTIONS (1)
  - Nephrolithiasis [Not Recovered/Not Resolved]
